FAERS Safety Report 21991988 (Version 1)
Quarter: 2023Q1

REPORT INFORMATION
  Report Type: Spontaneous
  Country: US (occurrence: US)
  Receive Date: 20230214
  Receipt Date: 20230214
  Transmission Date: 20230418
  Serious: No
  Sender: FDA-Public Use
  Company Number: US-LUNDBECK-DKLU3057689

PATIENT
  Age: 46 Year
  Sex: Female
  Weight: 55.79 kg

DRUGS (2)
  1. NORTHERA [Suspect]
     Active Substance: DROXIDOPA
     Indication: Supraventricular tachycardia
     Dosage: IN THE MORNING, AT NOON, AT BEDTIME
     Route: 048
  2. NORTHERA [Suspect]
     Active Substance: DROXIDOPA
     Route: 048

REACTIONS (2)
  - Intentional underdose [Unknown]
  - Off label use [Unknown]
